FAERS Safety Report 6542238-3 (Version None)
Quarter: 2010Q1

REPORT INFORMATION
  Report Type: 
  Country: None (occurrence: None)
  Receive Date: 20100119
  Receipt Date: 20100115
  Transmission Date: 20100710
  Serious: Yes (Other)
  Sender: FDA-Public Use
  Company Number: B0625975A

PATIENT
  Age: 57 Year
  Weight: 70 kg

DRUGS (2)
  1. AMOXICILLIN AND CLAVULANATE POTASSIUM [Suspect]
     Indication: URINARY TRACT INFECTION
     Route: 048
     Dates: start: 20050913, end: 20050920
  2. LISINOPRIL [Concomitant]
     Route: 048
     Dates: start: 20050823, end: 20050929

REACTIONS (2)
  - LIVER FUNCTION TEST ABNORMAL [None]
  - PRURITUS [None]
